FAERS Safety Report 19268543 (Version 1)
Quarter: 2021Q2

REPORT INFORMATION
  Report Type: Report from Study
  Country: CA (occurrence: CA)
  Receive Date: 20210517
  Receipt Date: 20210517
  Transmission Date: 20210717
  Serious: Yes (Death, Hospitalization, Other)
  Sender: FDA-Public Use
  Company Number: CA-BAUSCH-BL-2021-016285

PATIENT
  Age: 83 Year
  Sex: Male

DRUGS (3)
  1. IXAZOMIB [Suspect]
     Active Substance: IXAZOMIB
     Indication: PLASMA CELL MYELOMA
     Route: 048
  2. DEXAMETHASONE. [Suspect]
     Active Substance: DEXAMETHASONE
     Indication: PLASMA CELL MYELOMA
     Route: 065
  3. CYCLOPHOSPHAMIDE. [Suspect]
     Active Substance: CYCLOPHOSPHAMIDE
     Indication: PLASMA CELL MYELOMA
     Route: 065

REACTIONS (8)
  - Ascites [Fatal]
  - Generalised oedema [Fatal]
  - Pleural effusion [Fatal]
  - Death [Fatal]
  - Cholelithiasis [Fatal]
  - Diverticulum intestinal [Fatal]
  - Product packaging quantity issue [Fatal]
  - Platelet count decreased [Fatal]
